FAERS Safety Report 10264964 (Version 2)
Quarter: 2014Q3

REPORT INFORMATION
  Report Type: Spontaneous
  Country: GB (occurrence: None)
  Receive Date: 20140624
  Receipt Date: 20140826
  Transmission Date: 20150326
  Serious: Yes (Other)
  Sender: FDA-Public Use
  Company Number: 2014-19772

PATIENT
  Age: 61 Year

DRUGS (1)
  1. EYLEA [Suspect]
     Active Substance: AFLIBERCEPT
     Indication: AGE-RELATED MACULAR DEGENERATION
     Dosage: LEFT EYLEA NO. 3 ITQ
     Route: 031
     Dates: start: 20140603

REACTIONS (3)
  - Eye disorder [None]
  - Blindness [None]
  - Endophthalmitis [None]

NARRATIVE: CASE EVENT DATE: 20140607
